FAERS Safety Report 20477282 (Version 2)
Quarter: 2022Q1

REPORT INFORMATION
  Report Type: Spontaneous
  Country: US (occurrence: US)
  Receive Date: 20220215
  Receipt Date: 20220317
  Transmission Date: 20220423
  Serious: No
  Sender: FDA-Public Use
  Company Number: US-GILEAD-2022-0570031

PATIENT
  Sex: Male

DRUGS (2)
  1. VEMLIDY [Suspect]
     Active Substance: TENOFOVIR ALAFENAMIDE FUMARATE
     Indication: Herpes simplex hepatitis
     Dosage: 1 DOSAGE FORM, QD
     Route: 048
  2. VIREAD [Concomitant]
     Active Substance: TENOFOVIR DISOPROXIL FUMARATE

REACTIONS (1)
  - Product dose omission issue [Unknown]
